FAERS Safety Report 4852557-4 (Version None)
Quarter: 2005Q4

REPORT INFORMATION
  Report Type: 
  Country: None (occurrence: None)
  Receive Date: 20051123
  Receipt Date: 20050426
  Transmission Date: 20060501
  Serious: Yes (Hospitalization)
  Sender: FDA-Public Use
  Company Number: 05SPA0107

PATIENT
  Age: 55 Year
  Sex: Female

DRUGS (6)
  1. GLIADEL [Suspect]
     Indication: ANAPLASTIC ASTROCYTOMA
     Dosage: 8 WAFERS
     Dates: start: 20040701
  2. DEXAMETHASONE [Concomitant]
  3. DIAZEPAM [Concomitant]
  4. VALPROATE (VALPROATE BISMUTH) [Concomitant]
  5. PHENOBARBITAL [Concomitant]
  6. TEMOZOLOMIDE [Concomitant]

REACTIONS (3)
  - BRAIN OEDEMA [None]
  - PLEURAL EFFUSION [None]
  - URINARY TRACT INFECTION [None]
